FAERS Safety Report 5793245-X (Version None)
Quarter: 2008Q2

REPORT INFORMATION
  Report Type: 
  Country: None (occurrence: None)
  Receive Date: 20080627
  Receipt Date: 20080417
  Transmission Date: 20081010
  Serious: Yes (Other)
  Sender: FDA-Public Use
  Company Number: CN-ASTRAZENECA-2008AP01973

PATIENT
  Age: 5 Year
  Sex: Male
  Weight: 20 kg

DRUGS (4)
  1. PULMICORT-100 [Suspect]
     Indication: ASTHMA
     Route: 055
     Dates: start: 20070301, end: 20070901
  2. PULMICORT-100 [Suspect]
     Dosage: INHALER REPLACED IN JAN 2008
     Route: 055
     Dates: start: 20070901, end: 20080214
  3. KETOTIFEN FUMARATE [Suspect]
     Indication: ASTHMA
     Route: 048
     Dates: start: 20070301, end: 20080214
  4. VENTOLIN [Suspect]
     Indication: ASTHMA
     Route: 045
     Dates: start: 20070901, end: 20080214

REACTIONS (8)
  - AGITATION [None]
  - BONE DENSITY DECREASED [None]
  - COUGH [None]
  - CRYING [None]
  - DYSPHONIA [None]
  - HYPERHIDROSIS [None]
  - OVERDOSE [None]
  - PRURITUS GENERALISED [None]
